FAERS Safety Report 24384106 (Version 1)
Quarter: 2024Q3

REPORT INFORMATION
  Report Type: Spontaneous
  Country: US (occurrence: None)
  Receive Date: 20240930
  Receipt Date: 20240930
  Transmission Date: 20241017
  Serious: Yes (Death)
  Sender: Public
  Company Number: None

PATIENT
  Age: 84 Year
  Sex: Female
  Weight: 54.36 kg

DRUGS (11)
  1. REVLIMID [Suspect]
     Active Substance: LENALIDOMIDE
     Indication: Myelodysplastic syndrome
     Dosage: 1 TOT -TITAK DAUKT IRAK
     Route: 048
     Dates: start: 20240816, end: 20240906
  2. Advair HFA 115 mcg-21 mcg/actuation aerosol inhaler [Concomitant]
  3. ALENDRONIC ACID [Concomitant]
     Active Substance: ALENDRONIC ACID
  4. bumetanide 1 mg tablet [Concomitant]
  5. escitalopram 20 mg tablet [Concomitant]
  6. ferrous gluconate 324 mg (37.5 mg iron) tablet [Concomitant]
  7. fluticasone propionate 50 mcg/actuation blister powder for inhalation [Concomitant]
  8. GABAPENTIN [Concomitant]
     Active Substance: GABAPENTIN
  9. Multaq 400 mg tablet [Concomitant]
  10. pantoprazole 40 mg tablet,delayed release [Concomitant]
  11. Spiriva Respimat 1.25 mcg/actuation solution for inhalation [Concomitant]

REACTIONS (1)
  - Death [None]

NARRATIVE: CASE EVENT DATE: 20240906
